FAERS Safety Report 7988391-6 (Version None)
Quarter: 2011Q4

REPORT INFORMATION
  Report Type: 
  Country: None (occurrence: None)
  Receive Date: 20111216
  Receipt Date: 20111205
  Transmission Date: 20120403
  Serious: Yes (Congenital Anomaly)
  Sender: FDA-Public Use
  Company Number: DE-ARROW GEN-2011-21085

PATIENT
  Sex: Female
  Weight: 35 kg

DRUGS (3)
  1. LAMOTRIGINE [Suspect]
     Indication: EPILEPSY
     Dosage: 25 MG, BID
     Route: 064
  2. BERLINSULIN H BASAL [Concomitant]
     Indication: TYPE 1 DIABETES MELLITUS
     Dosage: 25 I.U.
     Route: 064
  3. BERLINSULIN H NORMAL [Concomitant]
     Indication: TYPE 1 DIABETES MELLITUS
     Dosage: 60 I.U.
     Route: 064

REACTIONS (1)
  - PULMONARY VALVE INCOMPETENCE [None]
